FAERS Safety Report 4879657-7 (Version None)
Quarter: 2006Q1

REPORT INFORMATION
  Report Type: 
  Country: None (occurrence: None)
  Receive Date: 20060111
  Receipt Date: 20051221
  Transmission Date: 20060701
  Serious: Yes (Other)
  Sender: FDA-Public Use
  Company Number: US200512003697

PATIENT
  Age: 72 Year
  Sex: Male

DRUGS (14)
  1. FORTEO [Suspect]
     Indication: OSTEOPOROSIS
     Dates: start: 20040601
  2. FORTEO PEN (FORTEO PEN) PEN, DISPOSABLE [Concomitant]
  3. AVAPRO [Concomitant]
  4. PRAVACHOL [Concomitant]
  5. PLAVIX [Concomitant]
  6. FLOMAX [Concomitant]
  7. ASPIRIN [Concomitant]
  8. ATENOLOL [Concomitant]
  9. VITAMIN B COMPLEX (CALCIUM PANTOTHENATE, NICOTINAMIDE, PYRIDOXINE HYDR [Concomitant]
  10. CITRACAL + D (CALCIUM CITRATE, ERGOCALCIFEROL) [Concomitant]
  11. MAGNESIUM OXIDE (MAGNESIUM OXIDE) [Concomitant]
  12. VITAMIN B12 [Concomitant]
  13. FISH OIL (FISH OIL) [Concomitant]
  14. FOLIC ACID [Concomitant]

REACTIONS (4)
  - BLOOD HOMOCYSTEINE INCREASED [None]
  - BONE DENSITY DECREASED [None]
  - CARDIAC DISORDER [None]
  - CORONARY ARTERY OCCLUSION [None]
